FAERS Safety Report 4373347-5 (Version None)
Quarter: 2004Q2

REPORT INFORMATION
  Report Type: 
  Country: None (occurrence: None)
  Receive Date: 20040607
  Receipt Date: 20030521
  Transmission Date: 20050107
  Serious: Yes (Other)
  Sender: FDA-Public Use
  Company Number: 338430

PATIENT
  Age: 26 Year
  Sex: Female
  Weight: 84.4 kg

DRUGS (1)
  1. ACCUTANE [Suspect]
     Indication: ACNE CYSTIC
     Dosage: 2 PER DAY ORAL
     Route: 048
     Dates: start: 20020918

REACTIONS (2)
  - DEPRESSION [None]
  - EMOTIONAL DISORDER [None]
